FAERS Safety Report 4615311-4 (Version None)
Quarter: 2005Q1

REPORT INFORMATION
  Report Type: 
  Country: None (occurrence: None)
  Receive Date: 20050317
  Receipt Date: 20050307
  Transmission Date: 20050727
  Serious: Yes (Death, Life-Threatening, Hospitalization)
  Sender: FDA-Public Use
  Company Number: 200510104BFR

PATIENT
  Age: 72 Year
  Sex: Male
  Weight: 90 kg

DRUGS (8)
  1. MOXIFLOXACIN HYDROCHLORIDE [Suspect]
     Indication: LUNG DISORDER
     Dosage: 400 MG, TOTAL DAILY, ORAL
     Route: 048
     Dates: start: 20050201, end: 20050208
  2. DI ANTALVIC [Concomitant]
  3. PREVISCAN [Concomitant]
  4. RABEPRAZOLE SODIUM [Concomitant]
  5. EQUANIL [Concomitant]
  6. ENALAPRIL MALEATE [Concomitant]
  7. ESBERIVEN [Concomitant]
  8. PERMIXON [Concomitant]

REACTIONS (7)
  - CHOLESTASIS [None]
  - CYTOLYTIC HEPATITIS [None]
  - HEPATITIS [None]
  - HEPATITIS A ANTIBODY POSITIVE [None]
  - PYREXIA [None]
  - RENAL FAILURE [None]
  - TOXOPLASMA SEROLOGY POSITIVE [None]
